FAERS Safety Report 10970379 (Version 1)
Quarter: 2015Q1

REPORT INFORMATION
  Report Type: Spontaneous
  Country: US (occurrence: None)
  Receive Date: 20150327
  Receipt Date: 20150327
  Transmission Date: 20150721
  Serious: Yes (Other)
  Sender: FDA-Public Use
  Company Number: 20150169

PATIENT
  Age: 17 Year
  Sex: Male

DRUGS (11)
  1. FOSPHENYTOIN SODIUM INJECTION USP (FOSPHENYTOIN) INJECTIONRN [Suspect]
     Active Substance: FOSPHENYTOIN SODIUM
     Indication: GENERALISED TONIC-CLONIC SEIZURE
     Route: 042
  2. SERTRALINE [Suspect]
     Active Substance: SERTRALINE HYDROCHLORIDE
     Indication: IRRITABILITY
  3. QUETIAPINE [Suspect]
     Active Substance: QUETIAPINE
     Indication: IRRITABILITY
  4. TEMAZEPAM. [Suspect]
     Active Substance: TEMAZEPAM
     Indication: CIRCADIAN RHYTHM SLEEP DISORDER
  5. QUETIAPINE [Suspect]
     Active Substance: QUETIAPINE
     Indication: ABNORMAL BEHAVIOUR
  6. QUETIAPINE [Suspect]
     Active Substance: QUETIAPINE
     Indication: DEPRESSION
  7. PHENYTOIN. [Suspect]
     Active Substance: PHENYTOIN
     Indication: GENERALISED TONIC-CLONIC SEIZURE
     Route: 048
  8. QUETIAPINE [Suspect]
     Active Substance: QUETIAPINE
     Indication: MOOD SWINGS
  9. SERTRALINE [Suspect]
     Active Substance: SERTRALINE HYDROCHLORIDE
     Indication: ABNORMAL BEHAVIOUR
  10. SERTRALINE [Suspect]
     Active Substance: SERTRALINE HYDROCHLORIDE
     Indication: DEPRESSION
  11. SERTRALINE [Suspect]
     Active Substance: SERTRALINE HYDROCHLORIDE
     Indication: MOOD SWINGS

REACTIONS (3)
  - Metabolic encephalopathy [None]
  - Social avoidant behaviour [None]
  - Hyponatraemia [None]
